FAERS Safety Report 5024473-9 (Version None)
Quarter: 2006Q2

REPORT INFORMATION
  Report Type: 
  Country: None (occurrence: None)
  Receive Date: 20060613
  Receipt Date: 20060217
  Transmission Date: 20061013
  Serious: Yes (Other)
  Sender: FDA-Public Use
  Company Number: PHBS2006JP02757

PATIENT

DRUGS (9)
  1. DIOVAN [Suspect]
     Dosage: 40 MG/DAY
     Route: 048
  2. KERLONG [Concomitant]
     Dosage: 10 MG, UNK
     Route: 048
  3. KERLONG [Concomitant]
     Dosage: 5 MG/DAY
     Route: 048
  4. COLICOOL [Concomitant]
     Route: 048
  5. NORVASC [Concomitant]
     Dosage: 5 MG, UNK
     Route: 048
  6. FLUITRAN [Concomitant]
     Dosage: 1 MG/DAY
     Route: 048
  7. LIPITOR [Concomitant]
     Dosage: 5 MG, UNK
     Route: 048
  8. MICARDIS [Concomitant]
     Dosage: 20 MG, UNK
     Route: 048
  9. MYONAL [Concomitant]
     Route: 048

REACTIONS (1)
  - CARDIOMEGALY [None]
